FAERS Safety Report 12289709 (Version 3)
Quarter: 2017Q2

REPORT INFORMATION
  Report Type: Spontaneous
  Country: TW (occurrence: TW)
  Receive Date: 20160421
  Receipt Date: 20170627
  Transmission Date: 20170830
  Serious: Yes (Hospitalization)
  Sender: FDA-Public Use
  Company Number: TW-SUN PHARMACEUTICAL INDUSTRIES LTD-2016R1-115124

PATIENT
  Age: 85 Year
  Sex: Male

DRUGS (6)
  1. BUPROPION. [Interacting]
     Active Substance: BUPROPION
     Dosage: 150 MG, UNK
     Route: 065
  2. DULOXETINE. [Interacting]
     Active Substance: DULOXETINE
     Indication: MAJOR DEPRESSION
     Dosage: 60 MG, UNK
     Route: 065
  3. DULOXETINE. [Interacting]
     Active Substance: DULOXETINE
     Dosage: 30 MG, DAILY
     Route: 065
  4. BUPROPION. [Suspect]
     Active Substance: BUPROPION
     Indication: MAJOR DEPRESSION
     Dosage: 300 MG, DAILY
     Route: 065
  5. ESTAZOLAM. [Suspect]
     Active Substance: ESTAZOLAM
     Indication: INSOMNIA
     Route: 065
  6. DULOXETINE. [Interacting]
     Active Substance: DULOXETINE
     Dosage: 60 MG, DAILY
     Route: 065

REACTIONS (6)
  - Persecutory delusion [Recovered/Resolved]
  - Disorientation [Recovered/Resolved]
  - Leukocytosis [Unknown]
  - Delirium [Recovered/Resolved]
  - Hallucinations, mixed [Recovered/Resolved]
  - Drug interaction [Recovered/Resolved]
